FAERS Safety Report 11788576 (Version 1)
Quarter: 2015Q4

REPORT INFORMATION
  Report Type: Spontaneous
  Country: US (occurrence: None)
  Receive Date: 20151130
  Receipt Date: 20151130
  Transmission Date: 20160305
  Serious: Yes (Disabling)
  Sender: FDA-Public Use
  Company Number: None

PATIENT
  Age: 57 Year
  Sex: Male
  Weight: 77.11 kg

DRUGS (39)
  1. REISHI [Concomitant]
     Active Substance: REISHI
  2. RESVERATROL [Concomitant]
     Active Substance: RESVERATROL
  3. OXYCODONE [Concomitant]
     Active Substance: OXYCODONE
  4. NAC [Concomitant]
  5. MULTI MINERAL CITRATE MALATE [Concomitant]
  6. LITHIUM OROTATE [Concomitant]
     Active Substance: LITHIUM OROTATE
  7. CORDYCEPS MUSHROOMS [Concomitant]
  8. PINELLA EXTRACT [Concomitant]
  9. MELATONIN [Concomitant]
     Active Substance: MELATONIN
  10. TRYPTOPHAN [Concomitant]
     Active Substance: TRYPTOPHAN
  11. CBD OIL [Concomitant]
  12. ELEUTHERO [Concomitant]
     Active Substance: ELEUTHERO
  13. DIGESTIVE ENZYMES [Concomitant]
     Active Substance: UNSPECIFIED INGREDIENT
  14. LICORICE DGL [Concomitant]
  15. LIPOSOMAL VITAMIN C [Concomitant]
  16. B12 HYDROXYCOBALAMIN [Concomitant]
  17. ASHWAGANDA [Concomitant]
  18. CALCIUM D GLUCARATE [Concomitant]
  19. OLIVE LEAF EXTRACT [Concomitant]
  20. CIPRO [Suspect]
     Active Substance: CIPROFLOXACIN HYDROCHLORIDE
     Indication: RESPIRATORY TRACT INFECTION
     Dates: start: 20111110, end: 20111115
  21. ZNP BAR [Concomitant]
     Active Substance: PYRITHIONE ZINC
  22. VITAMIN D AND K [Concomitant]
  23. SUNFLOWER LECITHIN [Concomitant]
  24. PYCNOGENOL [Concomitant]
     Active Substance: DIETARY SUPPLEMENT
  25. XANAX [Concomitant]
     Active Substance: ALPRAZOLAM
  26. COLLAGEN [Concomitant]
     Active Substance: COLLAGEN
  27. SHIITAKE [Concomitant]
  28. ALA [Concomitant]
  29. LIPOSOMAL GLUTATHIONE [Concomitant]
  30. B6 (P5P FORM) [Concomitant]
  31. KRILL OIL [Concomitant]
     Active Substance: DIETARY SUPPLEMENT
  32. DIM [Concomitant]
  33. PROLINE RICH POLYPEPTIDE [Concomitant]
  34. PROBIOTICS [Concomitant]
     Active Substance: PROBIOTICS NOS
  35. QUERCETIN [Concomitant]
     Active Substance: QUERCETIN
  36. D-RIBOSE [Concomitant]
     Active Substance: DIETARY SUPPLEMENT
  37. PINE POLLEN EXTRACT [Concomitant]
  38. SILICA [Concomitant]
     Active Substance: SILICON DIOXIDE
  39. MICELIZED VITAMIN A [Concomitant]
     Dates: start: 20111110, end: 20111115

REACTIONS (36)
  - Libido decreased [None]
  - Insomnia [None]
  - Back pain [None]
  - Pain in extremity [None]
  - Fibromyalgia [None]
  - Fatigue [None]
  - Anxiety [None]
  - Pain in jaw [None]
  - Vomiting [None]
  - Muscular weakness [None]
  - Neck pain [None]
  - Depression [None]
  - Abasia [None]
  - Tachycardia [None]
  - Arthralgia [None]
  - Arthritis [None]
  - Headache [None]
  - Tinnitus [None]
  - Dizziness [None]
  - Feeling abnormal [None]
  - Toothache [None]
  - Temperature intolerance [None]
  - Dyspnoea [None]
  - Nausea [None]
  - Panic attack [None]
  - Urticaria [None]
  - Paraesthesia [None]
  - Vision blurred [None]
  - Hyperacusis [None]
  - Amnesia [None]
  - Toxicity to various agents [None]
  - Hypoaesthesia [None]
  - Eye irritation [None]
  - Lymphadenopathy [None]
  - Hyperhidrosis [None]
  - Neuropathy peripheral [None]

NARRATIVE: CASE EVENT DATE: 20151112
